FAERS Safety Report 19917976 (Version 1)
Quarter: 2021Q4

REPORT INFORMATION
  Report Type: Spontaneous
  Country: IT (occurrence: IT)
  Receive Date: 20211005
  Receipt Date: 20211005
  Transmission Date: 20220304
  Serious: Yes (Other)
  Sender: FDA-Public Use
  Company Number: None

PATIENT
  Age: 36 Year
  Sex: Female

DRUGS (1)
  1. CIMZIA [Suspect]
     Active Substance: CERTOLIZUMAB PEGOL
     Indication: Psoriatic arthropathy
     Dates: start: 20190327, end: 20200327

REACTIONS (3)
  - Tenosynovitis [Recovered/Resolved]
  - Tuberculosis [Recovered/Resolved]
  - Dactylitis [Recovered/Resolved]

NARRATIVE: CASE EVENT DATE: 20200327
